FAERS Safety Report 12313536 (Version 1)
Quarter: 2016Q2

REPORT INFORMATION
  Report Type: Spontaneous
  Country: US (occurrence: None)
  Receive Date: 20160427
  Receipt Date: 20160427
  Transmission Date: 20160815
  Serious: No
  Sender: FDA-Public Use
  Company Number: None

PATIENT
  Age: 67 Year
  Sex: Female
  Weight: 73.48 kg

DRUGS (6)
  1. ASPIRIN. [Concomitant]
     Active Substance: ASPIRIN
  2. VITAMIN D3 [Concomitant]
     Active Substance: CHOLECALCIFEROL
  3. ZETIA [Suspect]
     Active Substance: EZETIMIBE
     Indication: BLOOD CHOLESTEROL INCREASED
     Dosage: 1 PILL DAILY BY MOUTH
     Route: 048
     Dates: start: 20151004, end: 20160308
  4. CARVEDILOL. [Concomitant]
     Active Substance: CARVEDILOL
  5. ISOSORB MONO ER [Concomitant]
  6. LOSARTAN POTASSIUM. [Concomitant]
     Active Substance: LOSARTAN POTASSIUM

REACTIONS (7)
  - Grip strength decreased [None]
  - Drug ineffective [None]
  - Insomnia [None]
  - Pain in extremity [None]
  - Middle insomnia [None]
  - Muscle spasms [None]
  - Peripheral swelling [None]

NARRATIVE: CASE EVENT DATE: 20160308
